FAERS Safety Report 10007348 (Version 3)
Quarter: 2014Q2

REPORT INFORMATION
  Report Type: Spontaneous
  Country: US (occurrence: US)
  Receive Date: 20140313
  Receipt Date: 20140613
  Transmission Date: 20141212
  Serious: Yes (Other)
  Sender: FDA-Public Use
  Company Number: US-GLAXOSMITHKLINE-A1064441A

PATIENT
  Age: 55 Year
  Sex: Female
  Weight: 82.3 kg

DRUGS (19)
  1. PROMETHAZINE [Concomitant]
  2. SUMATRIPTAN [Concomitant]
  3. SULFAMETHOXAZOLE [Concomitant]
  4. ATORVASTATIN [Concomitant]
  5. OXYCODONE + ACETAMINOPHEN [Concomitant]
  6. IBUPROFEN [Concomitant]
  7. VENTOLIN HFA [Suspect]
     Indication: RESPIRATORY DISORDER
     Dosage: 90MCG UNKNOWN
     Route: 065
     Dates: start: 2010
  8. ADVAIR HFA [Suspect]
     Indication: RESPIRATORY DISORDER
     Route: 065
  9. ACCUTANE [Suspect]
     Indication: PRODUCT USED FOR UNKNOWN INDICATION
     Route: 065
  10. MIRTAZAPINE [Concomitant]
  11. HYDROCODONE + ACETAMINOPHEN [Concomitant]
  12. ALPRAZOLAM [Concomitant]
  13. ATENOLOL [Concomitant]
  14. ZOLPIDEM [Concomitant]
  15. CIPROFLOXACIN [Concomitant]
  16. GABAPENTIN [Concomitant]
  17. LORAZEPAM [Concomitant]
  18. FLUCONAZOLE [Concomitant]
  19. POTASSIUM CHLORIDE [Concomitant]

REACTIONS (3)
  - Breast cancer metastatic [Not Recovered/Not Resolved]
  - Nasopharyngitis [Not Recovered/Not Resolved]
  - Drug hypersensitivity [Unknown]
